FAERS Safety Report 4424221-7 (Version None)
Quarter: 2004Q3

REPORT INFORMATION
  Report Type: 
  Country: None (occurrence: None)
  Receive Date: 20040809
  Receipt Date: 20040728
  Transmission Date: 20050211
  Serious: Yes (Life-Threatening, Other)
  Sender: FDA-Public Use
  Company Number: 2004052247

PATIENT
  Age: 72 Year
  Sex: Male

DRUGS (7)
  1. EPANUTIN (PHENYTOIN SODIUM) [Suspect]
     Indication: ILL-DEFINED DISORDER
     Dosage: 250 MG (50 MG, 5 IN 1 D), ORAL
     Route: 048
  2. BACLOFEN [Concomitant]
  3. FUROSEMIDE [Concomitant]
  4. FLUVASTATIN (FLUVASTATIN) [Concomitant]
  5. CYPROTERONE (CYPROTERONE) [Concomitant]
  6. RISEDRONIC ACID (RISEDRONIC ACID) [Concomitant]
  7. RABEPRAZOLE SODIUM [Concomitant]

REACTIONS (1)
  - CEREBROVASCULAR ACCIDENT [None]
